FAERS Safety Report 24351860 (Version 1)
Quarter: 2024Q3

REPORT INFORMATION
  Report Type: Report from Study
  Country: CA (occurrence: CA)
  Receive Date: 20240923
  Receipt Date: 20240923
  Transmission Date: 20241017
  Serious: No
  Sender: ROCHE
  Company Number: CA-ROCHE-3559699

PATIENT
  Age: 59 Year
  Sex: Female
  Weight: 133.0 kg

DRUGS (20)
  1. HERCEPTIN [Suspect]
     Active Substance: TRASTUZUMAB
     Indication: Product used for unknown indication
     Route: 065
  2. PERJETA [Suspect]
     Active Substance: PERTUZUMAB
     Indication: HER2 positive breast cancer
     Route: 042
     Dates: start: 20230427, end: 20230427
  3. PERJETA [Suspect]
     Active Substance: PERTUZUMAB
     Route: 042
     Dates: start: 20230518, end: 20231215
  4. PERJETA [Suspect]
     Active Substance: PERTUZUMAB
     Route: 042
     Dates: start: 20240418, end: 20240418
  5. PERJETA [Suspect]
     Active Substance: PERTUZUMAB
     Route: 042
     Dates: start: 20240509
  6. EMEND [Concomitant]
     Active Substance: APREPITANT
  7. OZEMPIC [Concomitant]
     Active Substance: SEMAGLUTIDE
  8. PREGABALIN [Concomitant]
     Active Substance: PREGABALIN
     Indication: Pain in extremity
  9. TRAZODONE [Concomitant]
     Active Substance: TRAZODONE HYDROCHLORIDE
  10. ASPIRIN [Concomitant]
     Active Substance: ASPIRIN
  11. CALCIUM [Concomitant]
     Active Substance: CALCIUM
  12. CELECOXIB [Concomitant]
     Active Substance: CELECOXIB
  13. DEXAMETHASONE [Concomitant]
     Active Substance: DEXAMETHASONE
  14. FILGRASTIM [Concomitant]
     Active Substance: FILGRASTIM
  15. ALVESCO [Concomitant]
     Active Substance: CICLESONIDE
  16. LETROZOLE [Concomitant]
     Active Substance: LETROZOLE
     Dates: start: 20231026
  17. ONDANSETRON [Concomitant]
     Active Substance: ONDANSETRON
  18. PROCHLORPERAZINE [Concomitant]
     Active Substance: PROCHLORPERAZINE
  19. ALBUTEROL [Concomitant]
     Active Substance: ALBUTEROL
  20. TAXOL [Concomitant]
     Active Substance: PACLITAXEL

REACTIONS (8)
  - Paraesthesia [Unknown]
  - Blood magnesium decreased [Unknown]
  - Diarrhoea [Unknown]
  - Rhinorrhoea [Unknown]
  - Fatigue [Unknown]
  - Mouth ulceration [Unknown]
  - Nasal ulcer [Unknown]
  - Oral pain [Unknown]

NARRATIVE: CASE EVENT DATE: 20240418
